FAERS Safety Report 20530578 (Version 1)
Quarter: 2022Q1

REPORT INFORMATION
  Report Type: Report from Study
  Country: CA (occurrence: CA)
  Receive Date: 20220301
  Receipt Date: 20220301
  Transmission Date: 20220424
  Serious: Yes (Other)
  Sender: FDA-Public Use
  Company Number: CA-ABBVIE-22K-028-4293893-00

PATIENT
  Sex: Female

DRUGS (4)
  1. HUMIRA [Suspect]
     Active Substance: ADALIMUMAB
     Indication: Colitis ulcerative
     Route: 058
     Dates: start: 20200108
  2. COVID-19 VACCINE [Concomitant]
     Indication: COVID-19 prophylaxis
     Dosage: DOSE 1
     Route: 014
     Dates: start: 2021, end: 2021
  3. COVID-19 VACCINE [Concomitant]
     Dosage: DOSE 2
     Route: 030
     Dates: start: 2021, end: 2021
  4. COVID-19 VACCINE [Concomitant]
     Dosage: DOSE 3
     Route: 030
     Dates: start: 202111, end: 202111

REACTIONS (8)
  - Benign gastrointestinal neoplasm [Unknown]
  - Wrong technique in product usage process [Unknown]
  - Sensitive skin [Unknown]
  - Skin atrophy [Unknown]
  - Skin reaction [Not Recovered/Not Resolved]
  - Swelling [Recovered/Resolved]
  - Arthritis [Unknown]
  - Erythema [Unknown]
